FAERS Safety Report 5178317-5 (Version None)
Quarter: 2006Q4

REPORT INFORMATION
  Report Type: 
  Country: None (occurrence: None)
  Receive Date: 20061208
  Receipt Date: 20061127
  Transmission Date: 20070319
  Serious: Yes (Hospitalization)
  Sender: FDA-Public Use
  Company Number: T200601373

PATIENT
  Age: 27 Year
  Sex: Male

DRUGS (10)
  1. MORPHINE [Suspect]
     Indication: PAIN PROPHYLAXIS
     Dosage: SEE IMAGE
     Route: 042
  2. NADROPARIN (NADROPARIN) [Concomitant]
  3. CEFAZOLIN [Concomitant]
  4. ACETAMINOPHEN [Concomitant]
  5. DICLOFENAC (DICLOFENAC) [Concomitant]
  6. LIDOCAINE [Concomitant]
  7. BUPIVACAINE [Concomitant]
  8. EPHEDRINE SUL CAP [Concomitant]
  9. MIDAZOLAM HCL [Concomitant]
  10. MANNITOL [Concomitant]

REACTIONS (11)
  - ACUTE GENERALISED EXANTHEMATOUS PUSTULOSIS [None]
  - ALANINE AMINOTRANSFERASE INCREASED [None]
  - ASPARTATE AMINOTRANSFERASE INCREASED [None]
  - C-REACTIVE PROTEIN INCREASED [None]
  - EOSINOPHILIA [None]
  - LEUKOCYTOSIS [None]
  - NEUTROPHILIA [None]
  - RED BLOOD CELL SEDIMENTATION RATE INCREASED [None]
  - SKIN GRAFT [None]
  - SKIN TEST POSITIVE [None]
  - TOXIC SHOCK SYNDROME [None]
